FAERS Safety Report 8058996-5 (Version None)
Quarter: 2012Q1

REPORT INFORMATION
  Report Type: 
  Country: None (occurrence: None)
  Receive Date: 20120112
  Receipt Date: 20111230
  Transmission Date: 20120608
  Serious: Yes (Hospitalization)
  Sender: FDA-Public Use
  Company Number: FK201200030

PATIENT
  Age: 58 Year
  Sex: Female
  Weight: 53.8 kg

DRUGS (7)
  1. CISPLATIN [Suspect]
     Indication: GASTRIC CANCER
     Dosage: 47 MG, INTRAVENOUS
     Route: 042
     Dates: start: 20110517
  2. CISPLATIN [Suspect]
     Indication: GASTRIC CANCER
     Dosage: 47 MG, INTRAVENOUS
     Route: 042
     Dates: start: 20110627
  3. BEVACIZUMAB (BEVACIZUMAB) [Suspect]
     Indication: GASTRIC CANCER
     Dosage: 437.5 MG, INTRAVENOUS
     Route: 042
     Dates: start: 20110627
  4. BEVACIZUMAB (BEVACIZUMAB) [Suspect]
     Indication: GASTRIC CANCER
     Dosage: 437.5 MG, INTRAVENOUS
     Route: 042
     Dates: start: 20110517
  5. CAPECITABINE [Suspect]
     Indication: GASTRIC CANCER
     Dosage: 1800 MG, ORAL
     Route: 048
     Dates: start: 20110517
  6. CAPECITABINE [Suspect]
     Indication: GASTRIC CANCER
     Dosage: 1800 MG, ORAL
     Route: 048
     Dates: start: 20110627
  7. EPIRUBICIN [Suspect]
     Indication: GASTRIC CANCER
     Dosage: 80 MG, INTRAVENOUS
     Route: 042
     Dates: start: 20110517

REACTIONS (4)
  - PULMONARY EMBOLISM [None]
  - PALPITATIONS [None]
  - DIZZINESS [None]
  - DYSPNOEA [None]
